FAERS Safety Report 5064718-2 (Version None)
Quarter: 2006Q3

REPORT INFORMATION
  Report Type: 
  Country: None (occurrence: None)
  Receive Date: 20060728
  Receipt Date: 20060721
  Transmission Date: 20061208
  Serious: Yes (Hospitalization)
  Sender: FDA-Public Use
  Company Number: US-ROCHE-456545

PATIENT
  Age: 61 Year
  Sex: Female

DRUGS (4)
  1. BONIVA [Suspect]
     Indication: OSTEOPOROSIS
     Route: 048
     Dates: start: 20060115, end: 20060515
  2. CELEBREX [Concomitant]
     Route: 048
  3. ALBUTEROL SPIROS [Concomitant]
  4. DIOVAN [Concomitant]
     Indication: BLOOD PRESSURE

REACTIONS (5)
  - DYSPHAGIA [None]
  - GASTRITIS [None]
  - INTESTINAL FUNCTIONAL DISORDER [None]
  - OEDEMA PERIPHERAL [None]
  - RENAL DISORDER [None]
